FAERS Safety Report 9903782 (Version 2)
Quarter: 2014Q1

REPORT INFORMATION
  Report Type: Spontaneous
  Country: SE (occurrence: SE)
  Receive Date: 20140218
  Receipt Date: 20140327
  Transmission Date: 20141002
  Serious: Yes (Other)
  Sender: FDA-Public Use
  Company Number: SE-PFIZER INC-2014039597

PATIENT
  Age: 38 Year
  Sex: Male

DRUGS (6)
  1. GENOTROPIN [Suspect]
     Indication: GROWTH HORMONE DEFICIENCY
     Dosage: 0.4 MG, UNK
     Dates: start: 1982
  2. GENOTROPIN [Suspect]
     Dosage: 0.6 MG, UNK
     Dates: start: 2010
  3. HYDROCORTISON [Concomitant]
     Dosage: 20 MG, UNK
  4. HYDROCORTISON [Concomitant]
     Dosage: 10 MG, UNK
  5. LEVAXIN [Concomitant]
     Dosage: 2000 UG, 1X/DAY
  6. TESTOGEL [Concomitant]
     Dosage: 50 MG, 2X/DAY

REACTIONS (5)
  - Central obesity [Not Recovered/Not Resolved]
  - Weight increased [Not Recovered/Not Resolved]
  - Alopecia [Unknown]
  - Blood prolactin increased [Unknown]
  - Acromegaly [Not Recovered/Not Resolved]
